FAERS Safety Report 15688595 (Version 2)
Quarter: 2019Q1

REPORT INFORMATION
  Report Type: Report from Study
  Country: DE (occurrence: DE)
  Receive Date: 20181205
  Receipt Date: 20190125
  Transmission Date: 20190417
  Serious: Yes (Hospitalization, Other)
  Sender: FDA-Public Use
  Company Number: DE-ACCORD-094791

PATIENT
  Age: 60 Year
  Sex: Male
  Weight: 94 kg

DRUGS (17)
  1. AMPHOTERICIN B. [Concomitant]
     Active Substance: AMPHOTERICIN B
     Indication: PROPHYLAXIS
     Dosage: DAILY DOSE: 400 MG MILLIGRAM(S) EVERY DAY
     Route: 048
     Dates: start: 20170502, end: 20170708
  2. MORPHINE [Concomitant]
     Active Substance: MORPHINE
     Indication: BACK PAIN
     Route: 048
     Dates: start: 201704, end: 20170708
  3. MOVICOL [Suspect]
     Active Substance: POLYETHYLENE GLYCOL 3350\POTASSIUM CHLORIDE\SODIUM BICARBONATE\SODIUM CHLORIDE
     Indication: PROPHYLAXIS
     Dosage: DAILY DOSE: 13.8 G GRAM(S) EVERY DAY
     Route: 048
     Dates: start: 201704, end: 20170701
  4. TRAMAL [Concomitant]
     Active Substance: TRAMADOL
     Indication: BACK PAIN
     Dosage: DAILY DOSE: 225 MG MILLIGRAM(S) EVERY DAY
     Route: 048
     Dates: start: 20170509, end: 20170708
  5. OXYCODONE HYDROCHLORIDE / NALOXONE HYDROCHLORIDE DIHYDRATE [Concomitant]
     Indication: BACK PAIN
     Dosage: DAILY DOSE: 4020 MG MILLIGRAM(S) EVERY DAY
     Route: 048
     Dates: start: 201704, end: 20170509
  6. DIPIDOLOR [Concomitant]
     Active Substance: PIRITRAMIDE
     Indication: PAIN
     Dosage: DAILY DOSE: 7.5 MG MILLIGRAM(S) EVERY DAY
     Route: 041
     Dates: start: 20170516, end: 20170516
  7. VALSARTAN. [Concomitant]
     Active Substance: VALSARTAN
     Indication: HYPERTENSION
     Dosage: 160 MILLIGRAM
     Route: 048
     Dates: end: 2017
  8. FENTANYL. [Concomitant]
     Active Substance: FENTANYL
     Indication: PAIN
     Route: 062
     Dates: start: 20170516, end: 20170708
  9. ABRAXANE [Suspect]
     Active Substance: PACLITAXEL
     Indication: NON-SMALL CELL LUNG CANCER
     Dosage: DAILY DOSE: 50 MG/M2 MILLIGRAM(S)/SQ. METER EVERY DAY
     Route: 041
     Dates: start: 20170502, end: 20170509
  10. AMLODIPINE [Concomitant]
     Active Substance: AMLODIPINE BESYLATE
     Indication: HYPERTENSION
     Dosage: DAILY DOSE: 5 MG MILLIGRAM(S) EVERY DAY
     Route: 048
     Dates: end: 20170701
  11. CLEXANE [Concomitant]
     Active Substance: ENOXAPARIN SODIUM
     Indication: PROPHYLAXIS
     Dosage: DAILY DOSE: 0.4 ML MILLILITRE(S) EVERY DAY
     Route: 058
     Dates: start: 20170516, end: 20170601
  12. GLANDOMED [Concomitant]
     Indication: PROPHYLAXIS
     Dosage: DAILY DOSE: 80 ML MILLILITRE(S) EVERY DAY
     Route: 048
     Dates: start: 20170502, end: 20170708
  13. PANTOZOL [Concomitant]
     Active Substance: PANTOPRAZOLE SODIUM
     Indication: PROPHYLAXIS
     Dosage: DAILY DOSE: 40 MG MILLIGRAM(S) EVERY DAY
     Route: 048
     Dates: start: 20170424, end: 20170701
  14. CALCIUM CHLORIDE ANHYDROUS/POTASSIUM CHLORIDE [Concomitant]
     Indication: PROPHYLAXIS
     Dosage: DAILY DOSE: 42 ML MILLILITRE(S) EVERY HOUR
     Route: 041
     Dates: start: 20170516, end: 20170601
  15. MORPHINE SULFATE. [Concomitant]
     Active Substance: MORPHINE SULFATE
     Dosage: DAILY DOSE: 10 MG MILLIGRAM(S) EVERY DAY
     Route: 048
     Dates: start: 20170516, end: 20170516
  16. VALSARTAN. [Concomitant]
     Active Substance: VALSARTAN
     Indication: HYPERTENSION
     Dosage: DAILY DOSE: 160 MG MILLIGRAM(S) EVERY DAY
     Route: 048
  17. CARBOPLATIN. [Suspect]
     Active Substance: CARBOPLATIN
     Indication: NON-SMALL CELL LUNG CANCER
     Dosage: 575 MGXMIN/ML
     Route: 041
     Dates: start: 20170502, end: 20170502

REACTIONS (4)
  - Diarrhoea [Recovered/Resolved]
  - Malaise [Not Recovered/Not Resolved]
  - Blood creatinine increased [Recovered/Resolved]
  - Pulmonary sepsis [Recovered/Resolved]

NARRATIVE: CASE EVENT DATE: 20170514
